FAERS Safety Report 12662877 (Version 1)
Quarter: 2016Q3

REPORT INFORMATION
  Report Type: Spontaneous
  Country: US (occurrence: US)
  Receive Date: 20160818
  Receipt Date: 20160818
  Transmission Date: 20161109
  Serious: Yes (Death, Hospitalization, Other)
  Sender: FDA-Public Use
  Company Number: US-APOTEX-2016AP010490

PATIENT

DRUGS (4)
  1. CYCLOSPORINE. [Suspect]
     Active Substance: CYCLOSPORINE
     Indication: FOCAL SEGMENTAL GLOMERULOSCLEROSIS
     Route: 065
  2. PREDNISONE. [Suspect]
     Active Substance: PREDNISONE
     Indication: FOCAL SEGMENTAL GLOMERULOSCLEROSIS
     Route: 065
  3. AMPHOTERICIN B. [Suspect]
     Active Substance: AMPHOTERICIN B
     Indication: CELLULITIS
     Dosage: 0.7 MG/KG/DAY
     Route: 042
  4. AMPHOTERICIN B. [Suspect]
     Active Substance: AMPHOTERICIN B
     Indication: CRYPTOCOCCOSIS

REACTIONS (7)
  - Cryptococcosis [Fatal]
  - Skin ulcer [Not Recovered/Not Resolved]
  - Nephropathy toxic [Unknown]
  - Sepsis [Fatal]
  - Acinetobacter bacteraemia [Fatal]
  - Pulmonary embolism [Not Recovered/Not Resolved]
  - Cellulitis [Not Recovered/Not Resolved]
